FAERS Safety Report 9142289 (Version 1)
Quarter: 2013Q1

REPORT INFORMATION
  Report Type: Report from Study
  Country: US (occurrence: US)
  Receive Date: 20130305
  Receipt Date: 20130305
  Transmission Date: 20140127
  Serious: Yes (Other)
  Sender: FDA-Public Use
  Company Number: US-US-EMD SERONO, INC.-7194977

PATIENT
  Sex: Female

DRUGS (8)
  1. REBIF [Suspect]
     Indication: MULTIPLE SCLEROSIS
     Dates: start: 20040616
  2. FIORICET WITH CODEINE [Concomitant]
     Indication: PAIN
  3. DILAUDID [Concomitant]
     Indication: PAIN
  4. FENTANYL [Concomitant]
     Indication: PAIN
  5. NORCO [Concomitant]
     Indication: PAIN
  6. SEROQUEL [Concomitant]
     Indication: BIPOLAR DISORDER
  7. TRAZODONE [Concomitant]
     Indication: BIPOLAR DISORDER
  8. CORTISONE [Concomitant]
     Indication: PAIN

REACTIONS (16)
  - Thalassaemia [Unknown]
  - Thrombosis [Unknown]
  - Alopecia [Unknown]
  - Panic attack [Not Recovered/Not Resolved]
  - Burning sensation [Not Recovered/Not Resolved]
  - Eye infection [Unknown]
  - Eye inflammation [Unknown]
  - Fibromyalgia [Not Recovered/Not Resolved]
  - Restless legs syndrome [Not Recovered/Not Resolved]
  - Diplopia [Recovering/Resolving]
  - Visual impairment [Recovering/Resolving]
  - Dry eye [Unknown]
  - Malaise [Unknown]
  - Pyrexia [Unknown]
  - Muscle spasms [Not Recovered/Not Resolved]
  - Injection site pain [Unknown]
